FAERS Safety Report 8028902-8 (Version None)
Quarter: 2012Q1

REPORT INFORMATION
  Report Type: 
  Country: None (occurrence: None)
  Receive Date: 20120106
  Receipt Date: 20111229
  Transmission Date: 20120608
  Serious: Yes (Other)
  Sender: FDA-Public Use
  Company Number: FR-GLAXOSMITHKLINE-B0772184A

PATIENT
  Sex: Female

DRUGS (7)
  1. ISENTRESS [Concomitant]
  2. TRUVADA [Concomitant]
  3. ESCITALOPRAM OXALATE [Concomitant]
  4. PENTACARINAT [Concomitant]
  5. ATOVAQUONE [Suspect]
     Indication: PRODUCT USED FOR UNKNOWN INDICATION
     Route: 048
     Dates: start: 20110917
  6. CLARITHROMYCIN [Suspect]
     Indication: PRODUCT USED FOR UNKNOWN INDICATION
     Route: 048
     Dates: start: 20110825
  7. MINOCIN [Suspect]
     Indication: PRODUCT USED FOR UNKNOWN INDICATION
     Route: 048
     Dates: start: 20110917

REACTIONS (1)
  - PANCYTOPENIA [None]
